FAERS Safety Report 4640733-5 (Version None)
Quarter: 2005Q2

REPORT INFORMATION
  Report Type: 
  Country: None (occurrence: None)
  Receive Date: 20050322
  Receipt Date: 20041118
  Transmission Date: 20051028
  Serious: Yes (Life-Threatening, Hospitalization, Disabling, Other)
  Sender: FDA-Public Use
  Company Number: HQWYE681424NOV04

PATIENT
  Age: 20 Year
  Sex: Female

DRUGS (1)
  1. PROTONIX [Suspect]
     Indication: GASTROOESOPHAGEAL REFLUX DISEASE
     Dosage: 40 MG, 1X PER 1 DAY, ORAL
     Route: 048

REACTIONS (2)
  - SWELLING FACE [None]
  - URTICARIA [None]
